FAERS Safety Report 4457621-X (Version None)
Quarter: 2004Q3

REPORT INFORMATION
  Report Type: 
  Country: None (occurrence: None)
  Receive Date: 20040922
  Receipt Date: 20040913
  Transmission Date: 20050211
  Serious: Yes (Hospitalization)
  Sender: FDA-Public Use
  Company Number: HQWYE990613SEP04

PATIENT
  Age: 66 Year
  Sex: Female

DRUGS (2)
  1. ETODOLAC [Suspect]
     Indication: LOCALISED OSTEOARTHRITIS
     Dosage: 200 MG DAILY ORAL
     Route: 048
     Dates: start: 20040714, end: 20040801
  2. REBAMIPIDE (REBAMIPIDE) [Concomitant]

REACTIONS (2)
  - RENAL FAILURE ACUTE [None]
  - STEVENS-JOHNSON SYNDROME [None]
